FAERS Safety Report 4924623-6 (Version None)
Quarter: 2006Q1

REPORT INFORMATION
  Report Type: 
  Country: None (occurrence: None)
  Receive Date: 20060222
  Receipt Date: 20060216
  Transmission Date: 20060701
  Serious: Yes (Death, Life-Threatening, Other)
  Sender: FDA-Public Use
  Company Number: 200610668GDS

PATIENT
  Age: 68 Year
  Sex: Male
  Weight: 73 kg

DRUGS (4)
  1. SORAFENIB [Suspect]
     Indication: RENAL CELL CARCINOMA STAGE UNSPECIFIED
     Dosage: 400  MG, BID, ORAL
     Route: 048
     Dates: start: 20040525, end: 20050919
  2. ENAP [Concomitant]
  3. DICLOFENAC EPOLAMINE PATCH [Concomitant]
  4. FENTANYL CITRATE [Concomitant]

REACTIONS (3)
  - CACHEXIA [None]
  - CONDITION AGGRAVATED [None]
  - FATIGUE [None]
